FAERS Safety Report 17809453 (Version 1)
Quarter: 2020Q2

REPORT INFORMATION
  Report Type: Spontaneous
  Country: JP (occurrence: JP)
  Receive Date: 20200520
  Receipt Date: 20200520
  Transmission Date: 20200714
  Serious: Yes (Other)
  Sender: FDA-Public Use
  Company Number: NVSC2020JP136913

PATIENT
  Age: 71 Year
  Sex: Male

DRUGS (2)
  1. PAZOPANIB [Suspect]
     Active Substance: PAZOPANIB
     Indication: SKIN ANGIOSARCOMA
     Dosage: 800 MG
     Route: 065
  2. PAZOPANIB [Suspect]
     Active Substance: PAZOPANIB
     Dosage: 600 MG
     Route: 065

REACTIONS (11)
  - Thrombocytopenia [Unknown]
  - Nephrotic syndrome [Unknown]
  - White blood cell count decreased [Unknown]
  - Metastasis [Unknown]
  - Product use in unapproved indication [Unknown]
  - Hypertension [Unknown]
  - Therapy partial responder [Unknown]
  - Hypothyroidism [Unknown]
  - Neutropenia [Unknown]
  - Nausea [Unknown]
  - Diarrhoea [Unknown]
